FAERS Safety Report 4990300-9 (Version None)
Quarter: 2006Q2

REPORT INFORMATION
  Report Type: 
  Country: None (occurrence: None)
  Receive Date: 20060427
  Receipt Date: 20060417
  Transmission Date: 20061013
  Serious: Yes (Hospitalization)
  Sender: FDA-Public Use
  Company Number: 06H-034-0307737-00

PATIENT
  Age: 71 Year
  Sex: Female
  Weight: 86 kg

DRUGS (1)
  1. BUPIVACAINA INJECTION (BUPIVACAINE HYDROCHLORIDE INJECTION) (BUPIVACAI [Suspect]
     Indication: SPINAL ANAESTHESIA
     Dates: start: 20060411, end: 20060411

REACTIONS (3)
  - ANAESTHETIC COMPLICATION NEUROLOGICAL [None]
  - PARAESTHESIA [None]
  - SACRAL PAIN [None]
